FAERS Safety Report 15321960 (Version 1)
Quarter: 2018Q3

REPORT INFORMATION
  Report Type: Spontaneous
  Country: FR (occurrence: FR)
  Receive Date: 20180827
  Receipt Date: 20180827
  Transmission Date: 20181010
  Serious: Yes (Hospitalization)
  Sender: FDA-Public Use
  Company Number: FR-PFIZER INC-2018337924

PATIENT
  Age: 92 Year
  Sex: Female
  Weight: 94 kg

DRUGS (6)
  1. ECONAZOLE [Suspect]
     Active Substance: ECONAZOLE
     Indication: FUNGAL INFECTION
     Route: 003
     Dates: start: 20180624, end: 20180708
  2. MONOPROST [Suspect]
     Active Substance: LATANOPROST
     Indication: GLAUCOMA
     Dosage: 1 GTT, 1X/DAY
     Route: 047
     Dates: start: 20180618, end: 20180709
  3. ALPRAZOLAM. [Suspect]
     Active Substance: ALPRAZOLAM
     Indication: DEPRESSION
     Dosage: 0.75 MG, 1X/DAY
     Route: 048
     Dates: start: 20180618, end: 20180709
  4. VOGALENE [Suspect]
     Active Substance: METOPIMAZINE
     Indication: GASTROINTESTINAL DISORDER
     Route: 048
     Dates: start: 20180618, end: 20180709
  5. GELTIM LP [Suspect]
     Active Substance: TIMOLOL MALEATE
     Indication: GLAUCOMA
     Dosage: 1 GTT, 1X/DAY
     Route: 047
     Dates: start: 20180618, end: 20180709
  6. TRIMEBUTINE MALEATE [Suspect]
     Active Substance: TRIMEBUTINE MALEATE
     Indication: GASTROINTESTINAL DISORDER
     Route: 048
     Dates: start: 20180618, end: 20180709

REACTIONS (2)
  - Eosinophilia [Recovered/Resolved]
  - Rash maculo-papular [Recovered/Resolved]

NARRATIVE: CASE EVENT DATE: 20180705
